FAERS Safety Report 6181278-3 (Version None)
Quarter: 2009Q2

REPORT INFORMATION
  Report Type: 
  Country: None (occurrence: None)
  Receive Date: 20090501
  Receipt Date: 20090209
  Transmission Date: 20091009
  Serious: No
  Sender: FDA-Public Use
  Company Number: 2008000936

PATIENT
  Age: 70 Year
  Sex: Male
  Weight: 70.3075 kg

DRUGS (7)
  1. TREANDA [Suspect]
     Indication: CHRONIC LYMPHOCYTIC LEUKAEMIA
     Dosage: (100 MG/M2) , INTRAVENOUS
     Route: 042
     Dates: start: 20080820, end: 20081113
  2. ACYCLOVIR [Concomitant]
  3. LIPITOR [Concomitant]
  4. DIOVAN [Concomitant]
  5. METFORMIN HCL [Concomitant]
  6. METOPROLOL SUCCINATE [Concomitant]
  7. HYDROCORTISONE [Concomitant]

REACTIONS (4)
  - CHILLS [None]
  - ERYTHEMA [None]
  - PRURITUS [None]
  - RASH ERYTHEMATOUS [None]
